FAERS Safety Report 6432516-0 (Version None)
Quarter: 2009Q4

REPORT INFORMATION
  Report Type: 
  Country: None (occurrence: None)
  Receive Date: 20091105
  Receipt Date: 20091021
  Transmission Date: 20100525
  Serious: Yes (Other)
  Sender: FDA-Public Use
  Company Number: 1000009790

PATIENT
  Age: 75 Year
  Sex: Male

DRUGS (2)
  1. CITALOPRAM HYDROBROMIDE [Suspect]
     Indication: DEPRESSION
     Dosage: (20 MG)
  2. VIAGRA [Concomitant]

REACTIONS (3)
  - AGGRESSION [None]
  - HOMICIDE [None]
  - OVERDOSE [None]
